FAERS Safety Report 16382771 (Version 1)
Quarter: 2019Q2

REPORT INFORMATION
  Report Type: Spontaneous
  Country: CA (occurrence: CA)
  Receive Date: 20190603
  Receipt Date: 20190603
  Transmission Date: 20190711
  Serious: Yes (Other)
  Sender: FDA-Public Use
  Company Number: CA-PFIZER INC-2019234343

PATIENT
  Age: 52 Year
  Sex: Male

DRUGS (5)
  1. EFFEXOR XR [Suspect]
     Active Substance: VENLAFAXINE HYDROCHLORIDE
     Indication: DEPRESSION
     Dosage: 75 MG, 1X/DAY
  2. GLUTAMINE [Concomitant]
     Active Substance: GLUTAMINE
     Dosage: UNK
     Route: 048
  3. OMEGA III [Concomitant]
     Dosage: UNK
     Route: 048
  4. PROBIOTIC [BIFIDOBACTERIUM BIFIDUM;BIFIDOBACTERIUM LACTIS;BIFIDOBACTER [Concomitant]
     Dosage: UNK
     Route: 048
  5. L-LYSINE [LYSINE] [Concomitant]
     Dosage: UNK
     Route: 048

REACTIONS (7)
  - Ejaculation delayed [Recovered/Resolved]
  - Ejaculation failure [Recovered/Resolved]
  - Back pain [Recovered/Resolved]
  - Dysuria [Recovered/Resolved]
  - Anorgasmia [Recovered/Resolved]
  - Erectile dysfunction [Recovered/Resolved]
  - Testicular oedema [Recovered/Resolved]
